FAERS Safety Report 10208364 (Version 1)
Quarter: 2014Q2

REPORT INFORMATION
  Report Type: Spontaneous
  Country: US (occurrence: None)
  Receive Date: 20140528
  Receipt Date: 20140528
  Transmission Date: 20141212
  Serious: No
  Sender: FDA-Public Use
  Company Number: None

PATIENT
  Age: 79 Year
  Sex: Female
  Weight: 83.46 kg

DRUGS (17)
  1. BYDUREON [Suspect]
     Indication: TYPE 2 DIABETES MELLITUS
     Dosage: 2MG/VIAL ?4 PER BOX?ONCE VERY 7 DAYS?INJECTION
     Dates: start: 20140222, end: 20140419
  2. LETROZOLE [Concomitant]
  3. FOLIC ACID [Concomitant]
  4. CLONIDINE [Concomitant]
  5. BYSTOLIC [Concomitant]
  6. TUDORZA [Concomitant]
  7. AVAPRO [Concomitant]
  8. MONTELUKAST [Concomitant]
  9. BROVANA [Concomitant]
  10. ACTONEL [Concomitant]
  11. ALBUTEROL [Concomitant]
  12. PULMRCORT [Concomitant]
  13. ZYRTEC [Concomitant]
  14. FLORICAL [Concomitant]
  15. CINNAMON [Concomitant]
  16. VITAMIN E [Concomitant]
  17. VITAMINE D [Concomitant]

REACTIONS (1)
  - Injection site nodule [None]
